FAERS Safety Report 4553830-X (Version None)
Quarter: 2005Q1

REPORT INFORMATION
  Report Type: 
  Country: None (occurrence: None)
  Receive Date: 20050110
  Receipt Date: 20050110
  Transmission Date: 20050727
  Serious: No
  Sender: FDA-Public Use
  Company Number: None

PATIENT
  Age: 54 Year
  Sex: Female
  Weight: 89.8 kg

DRUGS (18)
  1. DANTROLENE [Suspect]
     Indication: NEUROLEPTIC MALIGNANT SYNDROME
     Dosage: 25 MG Q 6 HRS- TOLRATE- UPWARD TO 50 MG Q6 HR
     Dates: start: 20041224, end: 20050103
  2. CYANOCOBALAMIN [Concomitant]
  3. ENOXAPARIN SODIUM [Concomitant]
  4. FOLIC ACID [Concomitant]
  5. INSULIN ASPARTAMINE [Concomitant]
  6. MULTI-VITAMINS [Concomitant]
  7. POTASSIUM [Concomitant]
  8. LACTULOSE [Concomitant]
  9. RANITIDINE [Concomitant]
  10. THIAMINE [Concomitant]
  11. AZACTAM [Concomitant]
  12. VANCOMYCIN [Concomitant]
  13. PRAMIPEXOLE [Concomitant]
  14. ENALAPRIL [Concomitant]
  15. HALOPERIDOL [Concomitant]
  16. NS 0.9% WITH THIAMINE AND FOLIC ACID [Concomitant]
  17. DEXTROSE 5% [Concomitant]
  18. D5W WITH KCL [Concomitant]

REACTIONS (2)
  - HEPATOTOXICITY [None]
  - LIVER FUNCTION TEST ABNORMAL [None]
